FAERS Safety Report 14343695 (Version 2)
Quarter: 2018Q1

REPORT INFORMATION
  Report Type: Spontaneous
  Country: US (occurrence: US)
  Receive Date: 20180102
  Receipt Date: 20180223
  Transmission Date: 20180509
  Serious: No
  Sender: FDA-Public Use
  Company Number: US-PFIZER INC-2018000230

PATIENT
  Age: 66 Year
  Sex: Female
  Weight: 58 kg

DRUGS (1)
  1. ADVIL [Suspect]
     Active Substance: IBUPROFEN
     Indication: DISCOMFORT
     Dosage: 200MG; 1 TABLET BY MOUTH ONCE AND THEN ABOUT AN HOUR AND A HALF LATER SHE TOOK ANOTHER TABLET

REACTIONS (4)
  - Pain [Unknown]
  - Drug ineffective [Unknown]
  - Condition aggravated [Unknown]
  - Gait disturbance [Unknown]

NARRATIVE: CASE EVENT DATE: 201712
